FAERS Safety Report 9104229 (Version 2)
Quarter: 2013Q4

REPORT INFORMATION
  Report Type: Spontaneous
  Country: FR (occurrence: FR)
  Receive Date: 20130219
  Receipt Date: 20131015
  Transmission Date: 20140711
  Serious: Yes (Life-Threatening)
  Sender: FDA-Public Use
  Company Number: FR-PFIZER INC-2013057328

PATIENT
  Age: 63 Year
  Sex: Female

DRUGS (3)
  1. TAZOCILLINE [Suspect]
     Dosage: 12 G, DAILY
     Route: 042
     Dates: start: 20130108, end: 20130114
  2. ORBENINE [Suspect]
     Dosage: 12 G, DAILY
     Route: 042
     Dates: start: 20121220, end: 20130108
  3. GENTAMYCIN [Suspect]
     Dosage: UNK
     Dates: start: 20121220, end: 20121222

REACTIONS (3)
  - Toxic encephalopathy [Recovering/Resolving]
  - Renal failure acute [Not Recovered/Not Resolved]
  - Toxicity to various agents [Recovered/Resolved]
